FAERS Safety Report 25974513 (Version 3)
Quarter: 2025Q4

REPORT INFORMATION
  Report Type: Spontaneous
  Country: MX (occurrence: MX)
  Receive Date: 20251029
  Receipt Date: 20251217
  Transmission Date: 20260118
  Serious: Yes (Hospitalization, Other)
  Sender: NOVO NORDISK
  Company Number: MX-NOVOPROD-1544512

PATIENT
  Age: 44 Year
  Sex: Female
  Weight: 120 kg

DRUGS (2)
  1. RYBELSUS [Suspect]
     Active Substance: SEMAGLUTIDE
     Indication: Type 2 diabetes mellitus
     Dosage: 14 MG, QD
     Dates: start: 202501
  2. CORIATROS DUO [Concomitant]
     Indication: Hypertension
     Dosage: UNK

REACTIONS (11)
  - Hypophagia [Unknown]
  - Hypoglycaemia [Unknown]
  - Helicobacter infection [Unknown]
  - Gastrointestinal haemorrhage [Unknown]
  - Haemorrhoids [Unknown]
  - Gastrointestinal pain [Unknown]
  - Vomiting [Unknown]
  - Weight decreased [Unknown]
  - Nausea [Unknown]
  - Swelling face [Unknown]
  - Discomfort [Unknown]

NARRATIVE: CASE EVENT DATE: 20250728
